FAERS Safety Report 7532193-1 (Version None)
Quarter: 2011Q2

REPORT INFORMATION
  Report Type: 
  Country: None (occurrence: None)
  Receive Date: 20110608
  Receipt Date: 20110606
  Transmission Date: 20111010
  Serious: Yes (Hospitalization, Other)
  Sender: FDA-Public Use
  Company Number: JP-ABBOTT-09P-087-0605220-00

PATIENT
  Sex: Female
  Weight: 42.5 kg

DRUGS (16)
  1. FAMOTIDINE [Concomitant]
     Indication: GASTRITIS PROPHYLAXIS
     Route: 048
     Dates: start: 20080716
  2. ROSUVASTATIN CALCIUM [Concomitant]
     Indication: HYPERLIPIDAEMIA
     Route: 048
     Dates: start: 20080716
  3. LEFLUNOMIDE [Suspect]
     Indication: RHEUMATOID ARTHRITIS
     Route: 048
     Dates: start: 20080716, end: 20090928
  4. ALENDRONATE SODIUM [Concomitant]
     Indication: OSTEOPOROSIS
     Route: 048
     Dates: start: 20080716
  5. SULFASALAZINE [Concomitant]
     Indication: RHEUMATOID ARTHRITIS
     Dates: end: 20090621
  6. PREDNISOLONE [Concomitant]
  7. CIPROFLOXACIN [Concomitant]
     Indication: PNEUMONIA
     Route: 048
  8. HUMIRA [Suspect]
     Indication: RHEUMATOID ARTHRITIS
     Route: 058
     Dates: start: 20090326
  9. LEFLUNOMIDE [Concomitant]
  10. PREDNISOLONE [Concomitant]
     Route: 048
     Dates: start: 20090721, end: 20090913
  11. SULFASALAZINE [Concomitant]
     Dates: start: 20090622
  12. PREDNISOLONE [Concomitant]
     Dates: start: 20090914
  13. LEFLUNOMIDE [Suspect]
     Dates: start: 20091013
  14. ALFACALCIDOL [Concomitant]
     Indication: OSTEOPOROSIS
     Route: 048
     Dates: start: 20080716
  15. PREDNISOLONE [Concomitant]
     Indication: RHEUMATOID ARTHRITIS
     Route: 048
     Dates: end: 20090720
  16. SULFAMETHOXAZOLE AND TRIMETHOPRIM [Concomitant]
     Indication: PNEUMONIA
     Route: 048

REACTIONS (3)
  - DIZZINESS [None]
  - PNEUMONIA BACTERIAL [None]
  - RHEUMATOID FACTOR INCREASED [None]
